FAERS Safety Report 4372567-3 (Version None)
Quarter: 2004Q2

REPORT INFORMATION
  Report Type: 
  Country: None (occurrence: None)
  Receive Date: 20040526
  Receipt Date: 20040517
  Transmission Date: 20050107
  Serious: Yes (Hospitalization, Other)
  Sender: FDA-Public Use
  Company Number: USA-2002-0001039

PATIENT
  Age: 37 Year
  Sex: Male
  Weight: 143.3 kg

DRUGS (7)
  1. OXYCONTIN [Suspect]
     Indication: PAIN
     Dosage: SEE IMAGE
     Route: 048
  2. AMBIEN [Concomitant]
  3. CARISOPRODOL [Concomitant]
  4. AMITRIPTYLINE HYDROCHLORIDE [Concomitant]
  5. VIAGRA [Concomitant]
  6. TIAZAC [Concomitant]
  7. TYLOX (OXYCODONE TEREPHTHALATE) [Concomitant]

REACTIONS (22)
  - ANXIETY [None]
  - ATELECTASIS [None]
  - BACK INJURY [None]
  - BACK PAIN [None]
  - BONE GRAFT [None]
  - CERVICAL VERTEBRA INJURY [None]
  - DEHYDRATION [None]
  - DEPRESSION [None]
  - DRUG DEPENDENCE [None]
  - DRUG SCREEN POSITIVE [None]
  - DRUG WITHDRAWAL SYNDROME [None]
  - DUODENITIS [None]
  - GASTRITIS [None]
  - HYPERCHOLESTEROLAEMIA [None]
  - INTESTINAL FUNCTIONAL DISORDER [None]
  - OSTEOPOROSIS [None]
  - PAIN [None]
  - PAIN IN EXTREMITY [None]
  - ROAD TRAFFIC ACCIDENT [None]
  - SKIN GRAFT [None]
  - SPINAL FRACTURE [None]
  - SYNCOPE [None]
